FAERS Safety Report 20222354 (Version 1)
Quarter: 2021Q4

REPORT INFORMATION
  Report Type: Spontaneous
  Country: DE (occurrence: DE)
  Receive Date: 20211223
  Receipt Date: 20211223
  Transmission Date: 20220303
  Serious: Yes (Hospitalization, Other)
  Sender: FDA-Public Use
  Company Number: None

PATIENT
  Age: 72 Year
  Sex: Female
  Weight: 90 kg

DRUGS (1)
  1. VENLAFAXINE [Suspect]
     Active Substance: VENLAFAXINE HYDROCHLORIDE
     Indication: Product used for unknown indication
     Dosage: 225 MG, 1-0-0-0
     Route: 048

REACTIONS (5)
  - Ischaemia [Unknown]
  - Muscular weakness [Unknown]
  - Eye swelling [Unknown]
  - Somnolence [Unknown]
  - Arrhythmia [Unknown]
